FAERS Safety Report 8167134-X (Version None)
Quarter: 2012Q1

REPORT INFORMATION
  Report Type: 
  Country: None (occurrence: None)
  Receive Date: 20120227
  Receipt Date: 20120221
  Transmission Date: 20120608
  Serious: Yes (Death, Hospitalization)
  Sender: FDA-Public Use
  Company Number: US-BAYER-2011-072613

PATIENT
  Age: 50 Year
  Sex: Female

DRUGS (11)
  1. REGLAN [Concomitant]
     Dosage: UNK
     Route: 042
     Dates: start: 20090711
  2. LIDOCAINE [Concomitant]
     Dosage: UNK
     Route: 042
     Dates: start: 20090711
  3. COLACE [Concomitant]
     Dosage: 50 MG, BID
     Route: 048
     Dates: start: 20090711
  4. DROSPIRENONE AND ETHINYL ESTRADIOL [Suspect]
  5. DILAUDID [Concomitant]
     Dosage: UNK
     Dates: start: 20090711
  6. ZOFRAN [Concomitant]
     Dosage: UNK
     Dates: start: 20090711
  7. VICODIN [Concomitant]
     Dosage: UNK UNK, PRN
     Route: 048
     Dates: start: 20090711
  8. DEMEROL [Concomitant]
     Dosage: UNK UNK, PRN
     Route: 030
     Dates: start: 20090711
  9. YAZ [Suspect]
  10. YASMIN [Suspect]
  11. MULTI-VITAMIN [Concomitant]
     Dosage: UNK
     Dates: start: 20090711

REACTIONS (8)
  - DEEP VEIN THROMBOSIS [None]
  - PAIN [None]
  - ANXIETY [None]
  - SHOCK [None]
  - GENERAL PHYSICAL HEALTH DETERIORATION [None]
  - ACUTE RESPIRATORY FAILURE [None]
  - PULMONARY EMBOLISM [None]
  - CARDIO-RESPIRATORY ARREST [None]
